FAERS Safety Report 5616425-2 (Version None)
Quarter: 2008Q1

REPORT INFORMATION
  Report Type: 
  Country: None (occurrence: None)
  Receive Date: 20080207
  Receipt Date: 20080129
  Transmission Date: 20080703
  Serious: Yes (Other)
  Sender: FDA-Public Use
  Company Number: US-JNJFOC-20080200017

PATIENT
  Sex: Female
  Weight: 54.43 kg

DRUGS (3)
  1. DURAGESIC-100 [Suspect]
     Indication: ARTHROPATHY
     Route: 062
  2. MULTI-VITAMIN [Concomitant]
     Indication: MEDICAL DIET
     Route: 048
  3. MAGNESIUM [Concomitant]
     Indication: MEDICAL DIET
     Route: 048

REACTIONS (5)
  - DRUG EFFECT INCREASED [None]
  - DRUG INEFFECTIVE [None]
  - FIBROMYALGIA [None]
  - INAPPROPRIATE SCHEDULE OF DRUG ADMINISTRATION [None]
  - OVERDOSE [None]
